FAERS Safety Report 5454435-9 (Version None)
Quarter: 2007Q3

REPORT INFORMATION
  Report Type: 
  Country: None (occurrence: None)
  Receive Date: 20070917
  Receipt Date: 20060915
  Transmission Date: 20080115
  Serious: No
  Sender: FDA-Public Use
  Company Number: US-ASTRAZENECA-2006UW18103

PATIENT
  Age: 42 Year
  Sex: Female

DRUGS (5)
  1. SEROQUEL [Suspect]
     Indication: BIPOLAR DISORDER
     Route: 048
  2. SEROQUEL [Suspect]
     Indication: SCHIZOAFFECTIVE DISORDER
     Route: 048
  3. COGENTIN [Concomitant]
  4. LEXAPRO [Concomitant]
  5. HALDOL [Concomitant]

REACTIONS (2)
  - DISSOCIATION [None]
  - DYSKINESIA [None]
